FAERS Safety Report 7944937-5 (Version None)
Quarter: 2011Q4

REPORT INFORMATION
  Report Type: 
  Country: None (occurrence: None)
  Receive Date: 20111129
  Receipt Date: 20111121
  Transmission Date: 20120403
  Serious: Yes (Hospitalization, Disabling)
  Sender: FDA-Public Use
  Company Number: PHHY2011FR80638

PATIENT
  Sex: Female
  Weight: 60 kg

DRUGS (1)
  1. ZOLEDRONOC ACID [Suspect]
     Indication: OSTEOPOROSIS
     Dosage: UNK UKN, UNK
     Route: 042
     Dates: start: 20110301

REACTIONS (3)
  - OSTEONECROSIS [None]
  - PAIN [None]
  - FEMORAL NECK FRACTURE [None]
